FAERS Safety Report 8587583 (Version 4)
Quarter: 2014Q1

REPORT INFORMATION
  Report Type: Spontaneous
  Country: US (occurrence: US)
  Receive Date: 20120531
  Receipt Date: 20140110
  Transmission Date: 20141002
  Serious: Yes (Hospitalization, Disabling, Other)
  Sender: FDA-Public Use
  Company Number: US-ASTRAZENECA-2012SE33538

PATIENT
  Age: 58 Year
  Sex: Female
  Weight: 47.2 kg

DRUGS (20)
  1. NEXIUM [Suspect]
     Indication: GASTROOESOPHAGEAL REFLUX DISEASE
     Route: 048
     Dates: start: 2000, end: 2011
  2. NEXIUM [Suspect]
     Indication: GASTROOESOPHAGEAL REFLUX DISEASE
     Route: 048
     Dates: start: 2000
  3. NEXIUM [Suspect]
     Indication: GASTROOESOPHAGEAL REFLUX DISEASE
     Route: 048
     Dates: start: 20060815
  4. NEXIUM [Suspect]
     Indication: GASTROOESOPHAGEAL REFLUX DISEASE
     Route: 048
     Dates: start: 20080610
  5. PRILOSEC [Suspect]
     Route: 048
  6. SYNTHROID/LEVOXYL [Concomitant]
     Indication: HYPOTHYROIDISM
     Dosage: 50 TO 100 MCG
     Route: 048
     Dates: start: 20050818
  7. SYNTHROID/LEVOXYL [Concomitant]
     Indication: HYPOTHYROIDISM
     Dosage: 50 MCG
     Route: 048
     Dates: start: 20050812
  8. BIAXIN XL [Concomitant]
     Dates: start: 20050902
  9. NITROFURANTOIN MCR [Concomitant]
     Dates: start: 20051004
  10. PREDNISONE [Concomitant]
     Indication: INFLAMMATION
     Route: 048
     Dates: start: 20051130
  11. PREDNISONE [Concomitant]
     Indication: CHRONIC OBSTRUCTIVE PULMONARY DISEASE
     Route: 048
     Dates: start: 20051130
  12. SPIRIVA [Concomitant]
     Dosage: 18 MCG
     Dates: start: 20060411
  13. LASIX [Concomitant]
     Route: 048
     Dates: start: 20120516
  14. MIDAMOR [Concomitant]
     Route: 048
     Dates: start: 20120516
  15. BENADRYL ALLERGY [Concomitant]
     Route: 048
     Dates: start: 20120516
  16. TYLENOL [Concomitant]
     Dosage: EIGHT HOUR
     Route: 048
     Dates: start: 20120516
  17. ACIPHEX [Concomitant]
  18. ZANTAC [Concomitant]
  19. MILK OF MAGNESIA [Concomitant]
  20. ALTACE [Concomitant]
     Dates: start: 20070329

REACTIONS (19)
  - Spinal compression fracture [Unknown]
  - Chronic obstructive pulmonary disease [Unknown]
  - Cerebrovascular accident [Unknown]
  - Cardiac failure congestive [Unknown]
  - Pulmonary oedema [Unknown]
  - Osteoporosis [Unknown]
  - Body height decreased [Unknown]
  - Adrenal insufficiency [Unknown]
  - Arthritis [Unknown]
  - Multiple fractures [Unknown]
  - Hyperparathyroidism [Unknown]
  - Back pain [Unknown]
  - Emotional distress [Unknown]
  - Osteopenia [Unknown]
  - Osteoarthritis [Unknown]
  - Vertebral foraminal stenosis [Unknown]
  - Intervertebral disc protrusion [Unknown]
  - Intervertebral disc degeneration [Unknown]
  - Depression [Unknown]
